FAERS Safety Report 10659523 (Version 1)
Quarter: 2014Q4

REPORT INFORMATION
  Report Type: Spontaneous
  Country: RU (occurrence: RU)
  Receive Date: 20141217
  Receipt Date: 20141217
  Transmission Date: 20150529
  Serious: Yes (Other)
  Sender: FDA-Public Use
  Company Number: RU-ASTRAZENECA-2014SE95240

PATIENT
  Sex: Female

DRUGS (1)
  1. BUDESONIDE. [Suspect]
     Active Substance: BUDESONIDE
     Indication: ASTHMA
     Dosage: (GENERIC OF PULMICORT) 0.5, TWO TIMES A DAY
     Route: 055

REACTIONS (2)
  - Asthma [Recovering/Resolving]
  - Cough [Recovering/Resolving]
